FAERS Safety Report 21564750 (Version 1)
Quarter: 2022Q4

REPORT INFORMATION
  Report Type: Spontaneous
  Country: US (occurrence: US)
  Receive Date: 20221108
  Receipt Date: 20221108
  Transmission Date: 20230113
  Serious: No
  Sender: FDA-Public Use
  Company Number: US-drreddys-SPO/USA/22/0156484

PATIENT
  Age: 15 Year
  Sex: Male

DRUGS (2)
  1. ACCUTANE [Suspect]
     Active Substance: ISOTRETINOIN
     Indication: Product used for unknown indication
     Dosage: RMA ISSUE DATE: 14 JULY 2022, 06:44:40 PM, 11 AUGUST 2022, 07:26:12 PM, 18 SEPTEMBER 2022, 11:20:52
  2. ACCUTANE [Suspect]
     Active Substance: ISOTRETINOIN
     Dosage: RMA DATE: 01 FEBRUARY 2022, 04:52:40 PM, 01 MARCH 2022, 06:04:24 PM, 04 APRIL 2022, 07:52:47 PM, 05

REACTIONS (1)
  - Treatment noncompliance [Unknown]
